FAERS Safety Report 12520150 (Version 3)
Quarter: 2020Q3

REPORT INFORMATION
  Report Type: Report from Study
  Country: GB (occurrence: GB)
  Receive Date: 20160630
  Receipt Date: 20160718
  Transmission Date: 20201105
  Serious: Yes (Hospitalization)
  Sender: FDA-Public Use
  Company Number: GB-JNJFOC-20160625679

PATIENT
  Age: 70 Year
  Sex: Male
  Weight: 63.4 kg

DRUGS (9)
  1. IBRUTINIB [Suspect]
     Active Substance: IBRUTINIB
  2. NAB?PACLITAXEL [Suspect]
     Active Substance: PACLITAXEL
     Indication: PANCREATIC CARCINOMA METASTATIC
     Dosage: DAY  1, 8, 15
     Route: 042
     Dates: start: 20160310, end: 20160510
  3. DULOXETINE. [Concomitant]
     Active Substance: DULOXETINE
  4. ATORVASTATIN [Concomitant]
     Active Substance: ATORVASTATIN
  5. TRAMADOL. [Concomitant]
     Active Substance: TRAMADOL
     Dosage: 50?100 MG
  6. ENALAPRIL [Concomitant]
     Active Substance: ENALAPRIL
  7. IBRUTINIB [Suspect]
     Active Substance: IBRUTINIB
     Indication: PANCREATIC CARCINOMA METASTATIC
     Dates: start: 20160310, end: 20160621
  8. GEMCITABINE. [Suspect]
     Active Substance: GEMCITABINE
     Indication: PANCREATIC CARCINOMA METASTATIC
     Dosage: 1000 MG/M2, DAY 1,8,15
     Route: 042
     Dates: start: 20160310, end: 20160621
  9. NOVOMIX [Concomitant]
     Active Substance: INSULIN ASPART
     Dosage: 12 UNIT

REACTIONS (1)
  - Ischaemic cerebral infarction [Recovered/Resolved]

NARRATIVE: CASE EVENT DATE: 20160617
